FAERS Safety Report 23694480 (Version 2)
Quarter: 2024Q2

REPORT INFORMATION
  Report Type: Report from Study
  Country: US (occurrence: US)
  Receive Date: 20240401
  Receipt Date: 20240426
  Transmission Date: 20240716
  Serious: Yes (Hospitalization)
  Sender: FDA-Public Use
  Company Number: US-ABBVIE-5698658

PATIENT
  Sex: Male

DRUGS (2)
  1. HUMIRA [Suspect]
     Active Substance: ADALIMUMAB
     Indication: Rheumatoid arthritis
     Dosage: CITRATE FREE, FROM STRENGTH 40 MILLIGRAM
     Route: 058
     Dates: start: 20230803
  2. HUMIRA [Suspect]
     Active Substance: ADALIMUMAB
     Dosage: FORM STRENGTH: 40 MG?CITRATE FREE
     Route: 058

REACTIONS (7)
  - Mobility decreased [Unknown]
  - Fall [Not Recovered/Not Resolved]
  - Gait inability [Unknown]
  - Fall [Unknown]
  - Back disorder [Unknown]
  - Pain [Not Recovered/Not Resolved]
  - Injury [Unknown]

NARRATIVE: CASE EVENT DATE: 20240101
